FAERS Safety Report 20643980 (Version 1)
Quarter: 2022Q1

REPORT INFORMATION
  Report Type: Spontaneous
  Country: US (occurrence: None)
  Receive Date: 20220325
  Receipt Date: 20220325
  Transmission Date: 20220423
  Serious: Yes (Hospitalization)
  Sender: FDA-Public Use
  Company Number: None

PATIENT
  Age: 52 Year
  Sex: Male

DRUGS (15)
  1. OPSUMIT [Suspect]
     Active Substance: MACITENTAN
     Indication: Pulmonary arterial hypertension
     Dosage: 10MG QD ORAL?
     Route: 048
     Dates: start: 20180502
  2. TADALAFIL [Concomitant]
     Active Substance: TADALAFIL
  3. UPTRAVI [Concomitant]
     Active Substance: SELEXIPAG
  4. ZOFRAN [Concomitant]
     Active Substance: ONDANSETRON HYDROCHLORIDE
  5. FIORICET [Concomitant]
     Active Substance: ACETAMINOPHEN\BUTALBITAL\CAFFEINE
  6. lidocaine  patch [Concomitant]
  7. METOCLOPRAMIDE [Concomitant]
     Active Substance: METOCLOPRAMIDE
  8. SPIRONOLACTONE [Concomitant]
     Active Substance: SPIRONOLACTONE
  9. ALBUTEROL SULFATE [Concomitant]
     Active Substance: ALBUTEROL SULFATE
  10. PANTOPRAZOLE [Concomitant]
     Active Substance: PANTOPRAZOLE
  11. BUPROPION [Concomitant]
     Active Substance: BUPROPION
  12. BUMETANIDE [Concomitant]
     Active Substance: BUMETANIDE
  13. POTASSIUM CHLORIDE [Concomitant]
     Active Substance: POTASSIUM CHLORIDE
  14. COLCHICINE [Concomitant]
     Active Substance: COLCHICINE
  15. VITAMIN C [Concomitant]
     Active Substance: ASCORBIC ACID

REACTIONS (6)
  - Melaena [None]
  - Nausea [None]
  - Vomiting [None]
  - Abdominal pain [None]
  - Oesophageal motility disorder [None]
  - Portal hypertension [None]

NARRATIVE: CASE EVENT DATE: 20220320
